FAERS Safety Report 6626570-0 (Version None)
Quarter: 2010Q1

REPORT INFORMATION
  Report Type: 
  Country: None (occurrence: None)
  Receive Date: 20100310
  Receipt Date: 20100305
  Transmission Date: 20100710
  Serious: Yes (Other)
  Sender: FDA-Public Use
  Company Number: US-ABBOTT-10P-163-0619645-00

PATIENT
  Sex: Female
  Weight: 90.8 kg

DRUGS (3)
  1. HUMIRA [Suspect]
     Indication: CROHN'S DISEASE
     Dates: start: 20060101, end: 20070101
  2. HUMIRA [Suspect]
  3. METHOTREXATE [Concomitant]
     Indication: CROHN'S DISEASE
     Dosage: UNKNOWN
     Dates: start: 20080101, end: 20080101

REACTIONS (9)
  - CHRONIC OBSTRUCTIVE PULMONARY DISEASE [None]
  - DIARRHOEA [None]
  - DYSPNOEA [None]
  - GAIT DISTURBANCE [None]
  - GENERALISED OEDEMA [None]
  - INJECTION SITE PAIN [None]
  - RECTAL HAEMORRHAGE [None]
  - VOMITING [None]
  - WEIGHT INCREASED [None]
